FAERS Safety Report 12724615 (Version 2)
Quarter: 2016Q3

REPORT INFORMATION
  Report Type: Report from Study
  Country: HU (occurrence: HU)
  Receive Date: 20160908
  Receipt Date: 20160912
  Transmission Date: 20161109
  Serious: Yes (Death, Life-Threatening, Hospitalization, Other)
  Sender: FDA-Public Use
  Company Number: HU-009507513-1609HUN002805

PATIENT
  Age: 79 Year
  Sex: Male

DRUGS (3)
  1. CO VALSACOR [Concomitant]
     Dosage: 1 TABLET, QD
     Route: 048
     Dates: end: 20160905
  2. CORDARONE [Concomitant]
     Active Substance: AMIODARONE HYDROCHLORIDE
     Dosage: HALF A TABLET, QD
     Route: 048
     Dates: end: 20160905
  3. PEMBROLIZUMAB. [Suspect]
     Active Substance: PEMBROLIZUMAB
     Indication: METASTATIC MALIGNANT MELANOMA
     Dosage: 2 MG/KG, Q3W; STRENGTH: 50 MG
     Route: 042
     Dates: start: 20160817

REACTIONS (2)
  - Hepatorenal syndrome [Fatal]
  - Malignant neoplasm progression [Fatal]

NARRATIVE: CASE EVENT DATE: 20160830
